FAERS Safety Report 9263626 (Version 3)
Quarter: 2013Q2

REPORT INFORMATION
  Report Type: Report from Study
  Country: US (occurrence: US)
  Receive Date: 20130430
  Receipt Date: 20130607
  Transmission Date: 20140414
  Serious: Yes (Hospitalization)
  Sender: FDA-Public Use
  Company Number: US-PFIZER INC-2013127158

PATIENT
  Age: 56 Year
  Sex: Male
  Weight: 92.1 kg

DRUGS (13)
  1. OXALIPLATIN [Suspect]
     Indication: COLORECTAL CANCER METASTATIC
     Dosage: 138 MG, CYCLIC
     Dates: start: 20130118, end: 20130315
  2. FLUOROURACIL [Suspect]
     Indication: COLORECTAL CANCER METASTATIC
     Dosage: 5964 MG, CYCLIC
     Dates: start: 20130118, end: 20130315
  3. VEGFR1 (PK ANALYTE) [Suspect]
     Indication: COLORECTAL CANCER METASTATIC
     Dosage: LIQUID, CYCLIC
     Dates: start: 20130118
  4. FOLINIC ACID [Suspect]
     Indication: COLORECTAL CANCER METASTATIC
     Dosage: 852 MG, CYCLIC
     Dates: start: 20130118, end: 20130315
  5. DOCUSATE [Concomitant]
     Dosage: UNK
     Dates: start: 20120901
  6. VITAMIN D3 [Concomitant]
     Dosage: UNK
     Dates: start: 20120901
  7. ONDANSETRON [Concomitant]
     Dosage: UNK
     Dates: start: 20120914
  8. ONDANSETRON [Concomitant]
     Dosage: UNK
     Dates: start: 20130118
  9. DEXAMETHASONE [Concomitant]
     Dosage: UNK
     Dates: start: 20120914
  10. DIPHENHYDRAMINE [Concomitant]
     Dosage: UNK
     Dates: start: 20130118
  11. DECADRON [Concomitant]
     Dosage: UNK
     Dates: start: 20130118
  12. ACETAMINOPHEN [Concomitant]
  13. IRON [Concomitant]
     Dosage: UNK
     Dates: start: 20130215

REACTIONS (8)
  - Sepsis [Recovered/Resolved]
  - Diarrhoea [None]
  - Fatigue [None]
  - Leukocytosis [None]
  - Klebsiella test positive [None]
  - Tachycardia [None]
  - Malignant neoplasm progression [None]
  - Colon cancer [None]
